FAERS Safety Report 6738287-2 (Version None)
Quarter: 2010Q2

REPORT INFORMATION
  Report Type: 
  Country: None (occurrence: None)
  Receive Date: 20100524
  Receipt Date: 20100517
  Transmission Date: 20101027
  Serious: Yes (Hospitalization)
  Sender: FDA-Public Use
  Company Number: B0652070A

PATIENT
  Sex: Male

DRUGS (6)
  1. VALTREX [Suspect]
     Indication: HERPES ZOSTER
     Dosage: 3000MG PER DAY
     Route: 048
     Dates: start: 20100503, end: 20100506
  2. LOXONIN [Suspect]
     Indication: HERPES ZOSTER
     Dosage: 60MG PER DAY
     Route: 048
     Dates: start: 20100503, end: 20100506
  3. HERBESSER R [Concomitant]
     Dosage: 100MG PER DAY
     Route: 048
  4. ASPIRIN [Concomitant]
     Dosage: 100MG PER DAY
     Route: 048
  5. PARACLODIN [Concomitant]
     Dosage: 100MG PER DAY
     Route: 048
  6. SIGMART [Concomitant]
     Dosage: 15MG PER DAY
     Route: 048

REACTIONS (7)
  - ALTERED STATE OF CONSCIOUSNESS [None]
  - DELIRIUM [None]
  - DIZZINESS [None]
  - DYSLALIA [None]
  - NAUSEA [None]
  - PARALYSIS [None]
  - RENAL FAILURE ACUTE [None]
